FAERS Safety Report 7527309-7 (Version None)
Quarter: 2011Q2

REPORT INFORMATION
  Report Type: 
  Country: None (occurrence: None)
  Receive Date: 20110602
  Receipt Date: 20110520
  Transmission Date: 20111010
  Serious: Yes (Death)
  Sender: FDA-Public Use
  Company Number: 2011P1006740

PATIENT
  Age: 40 Year
  Sex: Male
  Weight: 81.6475 kg

DRUGS (3)
  1. ADDERALL 10 [Suspect]
     Indication: ATTENTION DEFICIT/HYPERACTIVITY DISORDER
     Dosage: 20 MG;QD;PO
     Route: 048
     Dates: end: 20090423
  2. DEXTROAMPHETAMINE SACCHARATE, SUFATE/AMPHETAMINE ASPARTATE, SULFATE [Suspect]
     Indication: ATTENTION DEFICIT/HYPERACTIVITY DISORDER
     Dosage: 10 MG;QD;PO
     Dates: start: 20070701, end: 20090423
  3. DEXTROAMPHETAMINE SACCHARATE, SUFATE/AMPHETAMINE ASPARTATE, SULFATE [Suspect]
     Indication: ATTENTION DEFICIT/HYPERACTIVITY DISORDER
     Dosage: 20 MG;QD;PO
     Dates: start: 20071101, end: 20090423

REACTIONS (2)
  - SUDDEN DEATH [None]
  - CARDIOMEGALY [None]
